FAERS Safety Report 9420095 (Version 3)
Quarter: 2013Q4

REPORT INFORMATION
  Report Type: Spontaneous
  Country: US (occurrence: US)
  Receive Date: 20130725
  Receipt Date: 20131125
  Transmission Date: 20140711
  Serious: Yes (Death)
  Sender: FDA-Public Use
  Company Number: US-PFIZER INC-2013214079

PATIENT
  Age: 66 Year
  Sex: Female

DRUGS (6)
  1. REVATIO [Suspect]
     Indication: PULMONARY HYPERTENSION
     Dosage: 30 MG, 3X/DAY
     Route: 048
     Dates: start: 201105
  2. REVATIO [Suspect]
     Indication: PULMONARY ARTERIAL HYPERTENSION
  3. IMURAN [Concomitant]
     Indication: CONNECTIVE TISSUE DISORDER
  4. REMODULIN [Concomitant]
     Indication: PULMONARY ARTERIAL HYPERTENSION
     Dosage: UNK
     Route: 058
     Dates: start: 2012
  5. TORSEMIDE [Concomitant]
     Dosage: 60 MG, 2X/DAY
  6. METOLAZONE [Concomitant]
     Dosage: UNK, PRN

REACTIONS (2)
  - Pulmonary hypertension [Fatal]
  - Right ventricular failure [Fatal]
